FAERS Safety Report 10180805 (Version 1)
Quarter: 2014Q2

REPORT INFORMATION
  Report Type: Spontaneous
  Country: US (occurrence: US)
  Receive Date: 20140519
  Receipt Date: 20140519
  Transmission Date: 20141212
  Serious: No
  Sender: FDA-Public Use
  Company Number: US-AMGEN INC.-USASP2014015573

PATIENT
  Age: 80 Year
  Sex: Female

DRUGS (6)
  1. PROLIA [Suspect]
     Indication: OSTEOPOROSIS
     Dosage: UNK
     Route: 065
     Dates: start: 20140203
  2. LOVASTATIN [Concomitant]
  3. PROPRANOLOL [Concomitant]
  4. OMEPRAZOLE [Concomitant]
  5. BENADRYL                           /00000402/ [Concomitant]
     Indication: HYPERSENSITIVITY
     Dosage: UNK UNK, AS NECESSARY
  6. LETROZOLE [Concomitant]
     Indication: BREAST CANCER FEMALE

REACTIONS (2)
  - Injection site pain [Recovering/Resolving]
  - Pain in extremity [Recovering/Resolving]
